FAERS Safety Report 14941930 (Version 1)
Quarter: 2018Q2

REPORT INFORMATION
  Report Type: Spontaneous
  Country: FR (occurrence: FR)
  Receive Date: 20180527
  Receipt Date: 20180527
  Transmission Date: 20180711
  Serious: Yes (Hospitalization)
  Sender: FDA-Public Use
  Company Number: FR-MERCK KGAA-2048497

PATIENT
  Sex: Male

DRUGS (1)
  1. NOVOTHYROX [Suspect]
     Active Substance: LEVOTHYROXINE SODIUM
     Indication: PRODUCT USED FOR UNKNOWN INDICATION

REACTIONS (19)
  - Anxiety [None]
  - Apathy [None]
  - Vertigo [None]
  - Depression [None]
  - Fear [None]
  - Amnesia [None]
  - Fatigue [None]
  - Mood swings [None]
  - Negative thoughts [None]
  - Malaise [None]
  - Gastrointestinal disorder [None]
  - Arthralgia [None]
  - Affective disorder [None]
  - Hypotonia [None]
  - Decreased interest [None]
  - Peripheral coldness [None]
  - Anger [None]
  - Mobility decreased [None]
  - Diarrhoea [None]
